FAERS Safety Report 6848353-9 (Version None)
Quarter: 2010Q3

REPORT INFORMATION
  Report Type: 
  Country: None (occurrence: None)
  Receive Date: 20100716
  Receipt Date: 20100707
  Transmission Date: 20110219
  Serious: Yes (Other)
  Sender: FDA-Public Use
  Company Number: BR-ROCHE-713956

PATIENT
  Age: 35 Year
  Sex: Female

DRUGS (1)
  1. AVASTIN [Suspect]
     Dosage: 0.1 ML
     Route: 031

REACTIONS (1)
  - METRORRHAGIA [None]
